FAERS Safety Report 14165658 (Version 2)
Quarter: 2017Q4

REPORT INFORMATION
  Report Type: Spontaneous
  Country: US (occurrence: US)
  Receive Date: 20171107
  Receipt Date: 20171227
  Transmission Date: 20180321
  Serious: Yes (Life-Threatening, Hospitalization)
  Sender: FDA-Public Use
  Company Number: US-JNJFOC-20171104054

PATIENT
  Age: 47 Year
  Sex: Female

DRUGS (2)
  1. JANUMET [Suspect]
     Active Substance: METFORMIN HYDROCHLORIDE\SITAGLIPTIN PHOSPHATE
     Indication: PRODUCT USED FOR UNKNOWN INDICATION
     Dosage: 50/1000
     Route: 065
  2. INVOKANA [Suspect]
     Active Substance: CANAGLIFLOZIN
     Indication: DIABETES MELLITUS
     Route: 048
     Dates: start: 20141229, end: 20160322

REACTIONS (7)
  - Diabetic ketoacidosis [Recovering/Resolving]
  - Colitis [Recovering/Resolving]
  - Acute kidney injury [Recovering/Resolving]
  - Metabolic encephalopathy [Recovering/Resolving]
  - Acute respiratory failure [Recovering/Resolving]
  - Cardiomyopathy [Recovering/Resolving]
  - Septic shock [Recovering/Resolving]

NARRATIVE: CASE EVENT DATE: 20160321
